FAERS Safety Report 13951391 (Version 1)
Quarter: 2017Q3

REPORT INFORMATION
  Report Type: Spontaneous
  Country: US (occurrence: US)
  Receive Date: 20170908
  Receipt Date: 20170908
  Transmission Date: 20171128
  Serious: No
  Sender: FDA-Public Use
  Company Number: US-JAZZ-2017-US-008715

PATIENT
  Sex: Female

DRUGS (8)
  1. NUVIGIL [Concomitant]
     Active Substance: ARMODAFINIL
  2. XYREM [Suspect]
     Active Substance: SODIUM OXYBATE
     Dosage: 3 G, QD
     Route: 048
     Dates: start: 201501, end: 201502
  3. XYREM [Suspect]
     Active Substance: SODIUM OXYBATE
     Dosage: 3.5G, BID
     Route: 048
     Dates: start: 201501, end: 201502
  4. GRALISE [Concomitant]
     Active Substance: GABAPENTIN
  5. CALCIUM + VIT D [Concomitant]
     Active Substance: CALCIUM\VITAMIN D
  6. FLUOXETINE HCL [Concomitant]
     Active Substance: FLUOXETINE HYDROCHLORIDE
  7. XYREM [Suspect]
     Active Substance: SODIUM OXYBATE
     Indication: NARCOLEPSY
     Dosage: 3G, BID
     Route: 048
     Dates: start: 201501, end: 201501
  8. XYREM [Suspect]
     Active Substance: SODIUM OXYBATE
     Dosage: 2.5G, BID
     Route: 048
     Dates: start: 201706

REACTIONS (3)
  - Adjustment disorder with depressed mood [Recovered/Resolved]
  - Feeling drunk [Not Recovered/Not Resolved]
  - Sluggishness [Not Recovered/Not Resolved]

NARRATIVE: CASE EVENT DATE: 2015
